FAERS Safety Report 5356759-2 (Version None)
Quarter: 2007Q2

REPORT INFORMATION
  Report Type: 
  Country: None (occurrence: None)
  Receive Date: 20070612
  Receipt Date: 20070530
  Transmission Date: 20071010
  Serious: Yes (Hospitalization)
  Sender: FDA-Public Use
  Company Number: 2007BI007814

PATIENT
  Age: 57 Year
  Sex: Female

DRUGS (1)
  1. AVONEX [Suspect]
     Indication: MULTIPLE SCLEROSIS
     Dosage: IM
     Route: 030
     Dates: start: 20020301

REACTIONS (8)
  - ANIMAL BITE [None]
  - ASTHENIA [None]
  - CELLULITIS [None]
  - COGNITIVE DISORDER [None]
  - DEPRESSION [None]
  - TENDON INJURY [None]
  - UNEVALUABLE EVENT [None]
  - VERTIGO [None]
